FAERS Safety Report 4550942-1 (Version None)
Quarter: 2004Q4

REPORT INFORMATION
  Report Type: 
  Country: None (occurrence: None)
  Receive Date: 20041217
  Receipt Date: 20040811
  Transmission Date: 20050328
  Serious: No
  Sender: FDA-Public Use
  Company Number: 2004-BP-06861BP

PATIENT
  Age: 76 Year
  Sex: Female

DRUGS (7)
  1. SPIRIVA [Suspect]
     Indication: CHRONIC OBSTRUCTIVE AIRWAYS DISEASE
     Dosage: 18 MCG (18 MCG, 18 MCG ONCE DAILY), IH
     Route: 055
     Dates: start: 20040610, end: 20040801
  2. ALBUTEROL SULFATE [Suspect]
  3. EYE DROPS (TETRYZOLINE HYDROCHLORIDE) [Concomitant]
  4. ABLUTEROL (SALBUTAMOL) [Concomitant]
  5. SYNTHROID [Concomitant]
  6. LASIX [Concomitant]
  7. COUMADIN [Concomitant]

REACTIONS (2)
  - OPEN ANGLE GLAUCOMA [None]
  - URINARY RETENTION [None]
